FAERS Safety Report 8734963 (Version 2)
Quarter: 2012Q4

REPORT INFORMATION
  Report Type: 
  Country: TR (occurrence: TR)
  Receive Date: 20120821
  Receipt Date: 20120903
  Transmission Date: 20130627
  Serious: Yes (Hospitalization)
  Sender: FDA-Public Use
  Company Number: TR-BAYER-2012-086065

PATIENT
  Age: 62 Year
  Sex: Male

DRUGS (5)
  1. CLOPIDOGREL [Suspect]
     Indication: CORONARY ARTERY DISEASE
     Dosage: 75 mg, QD
     Route: 048
  2. CLOPIDOGREL [Interacting]
     Indication: CORONARY ARTERIAL STENT INSERTION
  3. ACETYLSALICYLIC ACID (} 100 MG) [Suspect]
     Indication: CORONARY ARTERY DISEASE
     Dosage: 100 mg, QD
     Route: 048
  4. ACETYLSALICYLIC ACID (} 100 MG) [Suspect]
     Indication: CORONARY ARTERIAL STENT INSERTION
  5. HERBAL PREPARATION [Interacting]
     Indication: CORONARY ARTERY DISEASE
     Dosage: UNK

REACTIONS (1)
  - Acute coronary syndrome [None]
